FAERS Safety Report 8771814 (Version 1)
Quarter: 2012Q4

REPORT INFORMATION
  Report Type: 
  Country: AR (occurrence: AR)
  Receive Date: 20120905
  Receipt Date: 20120905
  Transmission Date: 20130627
  Serious: Yes (Death, Other)
  Sender: FDA-Public Use
  Company Number: AR-ROCHE-1114546

PATIENT
  Age: 74 Year
  Sex: Male

DRUGS (1)
  1. LUCENTIS [Suspect]
     Indication: BLINDNESS
     Route: 050
     Dates: start: 2011

REACTIONS (3)
  - Cardio-respiratory arrest [Fatal]
  - Cerebrovascular accident [Unknown]
  - Malaise [Unknown]
